FAERS Safety Report 25794322 (Version 3)
Quarter: 2025Q4

REPORT INFORMATION
  Report Type: Report from Study
  Country: GB (occurrence: GB)
  Receive Date: 20250912
  Receipt Date: 20251106
  Transmission Date: 20260118
  Serious: Yes (Other)
  Sender: SAMSUNG BIOEPIS
  Company Number: GB-SAMSUNG BIOEPIS-SB-2025-30342

PATIENT
  Age: 55 Year
  Sex: Female

DRUGS (1)
  1. ETANERCEPT [Suspect]
     Active Substance: ETANERCEPT
     Indication: Ankylosing spondylitis
     Route: 058

REACTIONS (5)
  - Lower respiratory tract infection [Unknown]
  - Pneumonitis [Unknown]
  - Illness [Unknown]
  - Haemoptysis [Unknown]
  - Influenza [Unknown]
